FAERS Safety Report 9978866 (Version 1)
Quarter: 2014Q1

REPORT INFORMATION
  Report Type: Report from Study
  Country: US (occurrence: US)
  Receive Date: 20140306
  Receipt Date: 20140306
  Transmission Date: 20141002
  Serious: No
  Sender: FDA-Public Use
  Company Number: US-ABBVIE-13P-163-1172408-00

PATIENT
  Age: 56 Year
  Sex: Female

DRUGS (7)
  1. HUMIRA [Suspect]
     Indication: CROHN^S DISEASE
     Dates: start: 2009
  2. TOPROL [Concomitant]
     Indication: HYPERTENSION
  3. ASA [Concomitant]
     Indication: PRODUCT USED FOR UNKNOWN INDICATION
     Dosage: DAILY
  4. CYMBALTA [Concomitant]
     Indication: ABDOMINAL PAIN
  5. AMBIEN [Concomitant]
     Indication: INSOMNIA
     Dosage: AT NIGHT
  6. LORATAB [Concomitant]
     Indication: PAIN
     Dosage: 10/500 MG AS NEEDED
  7. LORAZEPAM [Concomitant]
     Indication: ANXIETY

REACTIONS (3)
  - Postmenopausal haemorrhage [Recovered/Resolved]
  - Breast tenderness [Recovered/Resolved]
  - Muscle spasms [Recovered/Resolved]
